FAERS Safety Report 4982977-9 (Version None)
Quarter: 2006Q2

REPORT INFORMATION
  Report Type: 
  Country: None (occurrence: None)
  Receive Date: 20060426
  Receipt Date: 20060417
  Transmission Date: 20061013
  Serious: Yes (Other)
  Sender: FDA-Public Use
  Company Number: US-JNJFOC-20060404089

PATIENT
  Sex: Female
  Weight: 91.63 kg

DRUGS (2)
  1. REMICADE [Suspect]
  2. REMICADE [Suspect]
     Indication: RHEUMATOID ARTHRITIS

REACTIONS (3)
  - INFLUENZA [None]
  - TRANSIENT ISCHAEMIC ATTACK [None]
  - VISUAL DISTURBANCE [None]
